FAERS Safety Report 10038949 (Version 1)
Quarter: 2014Q1

REPORT INFORMATION
  Report Type: Spontaneous
  Country: US (occurrence: None)
  Receive Date: 20140306
  Receipt Date: 20140306
  Transmission Date: 20141002
  Serious: Yes (Other)
  Sender: FDA-Public Use
  Company Number: 163-21880-13052751

PATIENT
  Age: 82 Year
  Sex: Female
  Weight: 57.61 kg

DRUGS (7)
  1. REVLIMID (LENALIDOMIDE) (10  MILLIGRAM, CAPSULES) [Suspect]
     Indication: MYELODYSPLASTIC SYNDROME
     Route: 048
     Dates: start: 201206
  2. AMLODIPINE (AMLODIPINE) [Concomitant]
  3. ADVAIR DISKUS [Suspect]
  4. WARFARIN (WARFARIN) [Suspect]
  5. SPIRIVA (TIOTROPIUM BROMIDE) [Concomitant]
  6. VITAMIN B-12 (CYANOCOBALAMIN) [Concomitant]
  7. NEULASTA (PEGFILGRASTIM) [Concomitant]

REACTIONS (1)
  - Diverticulitis [None]
